FAERS Safety Report 5719289-1 (Version None)
Quarter: 2008Q2

REPORT INFORMATION
  Report Type: 
  Country: None (occurrence: None)
  Receive Date: 20080428
  Receipt Date: 20080326
  Transmission Date: 20081010
  Serious: No
  Sender: FDA-Public Use
  Company Number: US-BAYER-200818372NA

PATIENT
  Sex: Male

DRUGS (1)
  1. AVELOX [Suspect]
     Indication: TONSILLITIS
     Route: 048
     Dates: start: 20070801, end: 20070801

REACTIONS (3)
  - AGEUSIA [None]
  - DYSGEUSIA [None]
  - PAROSMIA [None]
